FAERS Safety Report 9553213 (Version 1)
Quarter: 2013Q3

REPORT INFORMATION
  Report Type: Spontaneous
  Country: US (occurrence: None)
  Receive Date: 20130924
  Receipt Date: 20130924
  Transmission Date: 20140515
  Serious: No
  Sender: FDA-Public Use
  Company Number: None

PATIENT
  Age: 44 Year
  Sex: Male

DRUGS (2)
  1. VELCADE [Suspect]
     Indication: PLASMA CELL MYELOMA
     Dates: start: 201305, end: 201308
  2. REVLIMID [Suspect]
     Indication: PLASMA CELL MYELOMA

REACTIONS (4)
  - White blood cell count decreased [None]
  - Injection site discolouration [None]
  - Neutropenia [None]
  - Neuropathy peripheral [None]
